FAERS Safety Report 16640913 (Version 2)
Quarter: 2019Q3

REPORT INFORMATION
  Report Type: Report from Study
  Country: US (occurrence: US)
  Receive Date: 20190729
  Receipt Date: 20190801
  Transmission Date: 20191004
  Serious: Yes (Other)
  Sender: FDA-Public Use
  Company Number: US-ROCHE-2361618

PATIENT
  Sex: Male

DRUGS (6)
  1. ESBRIET [Interacting]
     Active Substance: PIRFENIDONE
     Indication: IDIOPATHIC PULMONARY FIBROSIS
     Dosage: TAKE 1 CAPSULE BY MOUTH 3 TIMES A DAY FOR 7 DAYS T
     Route: 048
     Dates: end: 20190716
  2. RYTHMOL [Concomitant]
     Active Substance: PROPAFENONE HYDROCHLORIDE
  3. ATENOLOL. [Concomitant]
     Active Substance: ATENOLOL
  4. ESBRIET [Suspect]
     Active Substance: PIRFENIDONE
     Indication: IDIOPATHIC PULMONARY FIBROSIS
     Dosage: TAKE 3 TABLET(S) BY MOUTH 3 TIMES A DAY
     Route: 048
  5. ESBRIET [Interacting]
     Active Substance: PIRFENIDONE
     Dosage: TAKE 2 CAPSULE(S) BY MOUTH 3 TIMES A DAY FOR 7 DAYS
     Route: 048
  6. ESBRIET [Interacting]
     Active Substance: PIRFENIDONE
     Dosage: TAKE 3 CAPSULE(S) BY MOUTH 3 TIMES A DAY THEREAFTER
     Route: 048

REACTIONS (3)
  - Drug interaction [Unknown]
  - Myocardial infarction [Recovered/Resolved]
  - Arrhythmia [Recovered/Resolved]
